FAERS Safety Report 16777375 (Version 1)
Quarter: 2019Q4

REPORT INFORMATION
  Report Type: Spontaneous
  Country: US (occurrence: US)
  Receive Date: 20190905
  Receipt Date: 20190905
  Transmission Date: 20200122
  Serious: Yes (Hospitalization)
  Sender: FDA-Public Use
  Company Number: None

PATIENT
  Age: 56 Year
  Sex: Female
  Weight: 63 kg

DRUGS (6)
  1. LORATIDINE [Concomitant]
     Active Substance: LORATADINE
  2. ROCALCITROL [Concomitant]
  3. IPRATROPIUM BROMIDE 0.06% [Suspect]
     Active Substance: IPRATROPIUM BROMIDE
     Indication: NASAL CONGESTION
     Route: 055
     Dates: start: 20190729, end: 20190801
  4. LOSARTAN. [Concomitant]
     Active Substance: LOSARTAN
  5. IPRATROPIUM BROMIDE 0.06% [Suspect]
     Active Substance: IPRATROPIUM BROMIDE
     Indication: OROPHARYNGEAL PAIN
     Route: 055
     Dates: start: 20190729, end: 20190801
  6. LEVOTHYROXINE. [Concomitant]
     Active Substance: LEVOTHYROXINE

REACTIONS (4)
  - Feeding disorder [None]
  - Areflexia [None]
  - Pharyngeal ulceration [None]
  - Dysphagia [None]

NARRATIVE: CASE EVENT DATE: 20190809
